FAERS Safety Report 8834762 (Version 5)
Quarter: 2013Q2

REPORT INFORMATION
  Report Type: Spontaneous
  Country: US (occurrence: US)
  Receive Date: 20121010
  Receipt Date: 20130426
  Transmission Date: 20140414
  Serious: Yes (Hospitalization, Other)
  Sender: FDA-Public Use
  Company Number: US-009507513-1205USA04816

PATIENT
  Sex: Female
  Weight: 61.22 kg

DRUGS (8)
  1. FOSAMAX [Suspect]
     Indication: OSTEOPOROSIS
     Dosage: 70 MG, QW
     Route: 048
     Dates: start: 199806, end: 200906
  2. FOSAMAX [Suspect]
     Indication: OSTEOPENIA
  3. FOSAMAX [Suspect]
     Indication: OSTEOPOROSIS
     Dosage: 10 MG, QD
     Route: 048
  4. FOSAMAX [Suspect]
     Indication: OSTEOPENIA
  5. ALENDRONATE SODIUM [Suspect]
     Dosage: 10 MG, UNK
  6. CALCIUM (UNSPECIFIED) (+) VITAMIN D (UNSPECIFIED) [Concomitant]
     Dosage: 500 MG, QD+200IU
     Route: 048
     Dates: start: 1997
  7. FLONASE [Concomitant]
     Dosage: 1 DF, QD
     Dates: start: 2007
  8. SINGULAIR [Concomitant]
     Dosage: UNK UNK, QD
     Dates: start: 2007

REACTIONS (19)
  - Femur fracture [Unknown]
  - Femur fracture [Unknown]
  - Intramedullary rod insertion [Unknown]
  - Intramedullary rod insertion [Unknown]
  - Tooth extraction [Unknown]
  - Arthritis [Unknown]
  - Hypertension [Unknown]
  - Hyperlipidaemia [Unknown]
  - Adverse event [Unknown]
  - Hypoaesthesia [Recovered/Resolved]
  - Anaemia postoperative [Unknown]
  - Hypotension [Unknown]
  - Chest discomfort [Recovered/Resolved]
  - Hypovolaemia [Unknown]
  - Electrocardiogram ST-T change [Unknown]
  - QRS axis abnormal [Unknown]
  - Pain in extremity [Not Recovered/Not Resolved]
  - Dizziness [Unknown]
  - Gastrooesophageal reflux disease [Unknown]
